FAERS Safety Report 11996653 (Version 2)
Quarter: 2016Q2

REPORT INFORMATION
  Report Type: Report from Study
  Country: BR (occurrence: BR)
  Receive Date: 20160203
  Receipt Date: 20160413
  Transmission Date: 20160815
  Serious: Yes (Death, Hospitalization, Other)
  Sender: FDA-Public Use
  Company Number: PHHY2016BR013104

PATIENT
  Sex: Female
  Weight: 79 kg

DRUGS (1)
  1. AFINITOR [Suspect]
     Active Substance: EVEROLIMUS
     Indication: BREAST CANCER
     Dosage: 1 DF OF 10 MG, QD
     Route: 048
     Dates: start: 201506

REACTIONS (8)
  - Malignant neoplasm progression [Fatal]
  - Hepatitis [Recovering/Resolving]
  - Metastasis [Recovering/Resolving]
  - Dizziness [Recovering/Resolving]
  - Abdominal distension [Recovering/Resolving]
  - Metastases to liver [Unknown]
  - Hepatic failure [Recovering/Resolving]
  - Weight increased [Recovering/Resolving]
